FAERS Safety Report 20558486 (Version 1)
Quarter: 2022Q1

REPORT INFORMATION
  Report Type: Spontaneous
  Country: US (occurrence: US)
  Receive Date: 20220307
  Receipt Date: 20220307
  Transmission Date: 20220423
  Serious: No
  Sender: FDA-Public Use
  Company Number: US-SA-SAC20220303000189

PATIENT
  Sex: Female

DRUGS (1)
  1. AUBAGIO [Suspect]
     Active Substance: TERIFLUNOMIDE
     Indication: Migraine
     Dosage: 14 MG, QD
     Route: 048
     Dates: start: 202202

REACTIONS (4)
  - Feeling hot [Unknown]
  - Paraesthesia [Unknown]
  - Alopecia [Unknown]
  - Product use in unapproved indication [Unknown]
